FAERS Safety Report 18473383 (Version 1)
Quarter: 2020Q4

REPORT INFORMATION
  Report Type: Spontaneous
  Country: US (occurrence: US)
  Receive Date: 20201104
  Receipt Date: 20201104
  Transmission Date: 20210114
  Serious: Yes (Other)
  Sender: FDA-Public Use
  Company Number: None

PATIENT
  Age: 73 Year
  Sex: Male
  Weight: 128.2 kg

DRUGS (57)
  1. CHLORHEXIDINE 0.12% ORAL RINSE [Suspect]
     Active Substance: CHLORHEXIDINE
     Indication: PRODUCT USED FOR UNKNOWN INDICATION
     Route: 002
     Dates: start: 20201006, end: 20201008
  2. AMIODARONE [Concomitant]
     Active Substance: AMIODARONE
  3. ASPIRIN. [Concomitant]
     Active Substance: ASPIRIN
  4. CALCIUM CHLORIDE. [Concomitant]
     Active Substance: CALCIUM CHLORIDE
  5. DOXYCYCLINE HYCL [Concomitant]
  6. PREMIX TITRATABLE DILUENT [Concomitant]
  7. SENNA/DOCUSATE SOD [Concomitant]
  8. CLOTRIMAZOLE/BETAMETH [Concomitant]
  9. EPINEPHRINE. [Concomitant]
     Active Substance: EPINEPHRINE
  10. FORMOTEROL [Concomitant]
     Active Substance: FORMOTEROL
  11. MAGNESIUM SULFATE. [Concomitant]
     Active Substance: MAGNESIUM SULFATE
  12. METOCLOPRAMIDE. [Concomitant]
     Active Substance: METOCLOPRAMIDE
  13. PANTOPRAZOLE [Concomitant]
     Active Substance: PANTOPRAZOLE
  14. ROSUVASTATIN. [Concomitant]
     Active Substance: ROSUVASTATIN
  15. BUDESONIDE-FORMOTEROL [Concomitant]
     Active Substance: BUDESONIDE\FORMOTEROL
  16. GENTAMICIN. [Concomitant]
     Active Substance: GENTAMICIN
  17. GLUCOSE [Concomitant]
     Active Substance: DEXTROSE
  18. HEPARIN [Concomitant]
     Active Substance: HEPARIN SODIUM
  19. LIOTHYRONINE [Concomitant]
     Active Substance: LIOTHYRONINE
  20. PHENOL (CHLORASEPTIC) [Concomitant]
  21. PROPOFOL. [Concomitant]
     Active Substance: PROPOFOL
  22. VASOPRESSIN. [Concomitant]
     Active Substance: VASOPRESSIN
  23. BUDESONIDE. [Concomitant]
     Active Substance: BUDESONIDE
  24. D10W [Concomitant]
     Active Substance: DEXTROSE\WATER
  25. DEXTROSE, UNSPECIFIED FORM. [Concomitant]
     Active Substance: DEXTROSE, UNSPECIFIED FORM
  26. ONDANSETRON [Concomitant]
     Active Substance: ONDANSETRON
  27. PIPERACILL-TAZ (ZOSYN) [Concomitant]
  28. VITAMIN B COMPLEX WITH C TAB [Concomitant]
  29. ALBUTEROL. [Concomitant]
     Active Substance: ALBUTEROL
  30. CEFEPIME [Concomitant]
     Active Substance: CEFEPIME HYDROCHLORIDE
  31. CEFUROXIME AXETIL. [Concomitant]
     Active Substance: CEFUROXIME AXETIL
  32. DEXTROSE. [Concomitant]
     Active Substance: DEXTROSE
  33. MUPIROCIN. [Concomitant]
     Active Substance: MUPIROCIN
  34. SOD BICARBONATE [Concomitant]
  35. SODIUM CHLORIDE. [Concomitant]
     Active Substance: SODIUM CHLORIDE
  36. VANCOMYCIN [Concomitant]
     Active Substance: VANCOMYCIN
  37. ACETAMINOPHEN. [Concomitant]
     Active Substance: ACETAMINOPHEN
  38. CEFAZOLIN [Concomitant]
     Active Substance: CEFAZOLIN
  39. D5-NS [Concomitant]
  40. DOCUSATE SOD [Concomitant]
  41. FAMOTIDINE. [Concomitant]
     Active Substance: FAMOTIDINE
  42. INSULIN LISPRO (HUMALOG) [Concomitant]
  43. LIDOCAINE. [Concomitant]
     Active Substance: LIDOCAINE
  44. MAGNESIUM OXIDE. [Concomitant]
     Active Substance: MAGNESIUM OXIDE
  45. NS [Concomitant]
     Active Substance: SODIUM CHLORIDE
  46. PANTOPRAZOLE SODIUM. [Concomitant]
     Active Substance: PANTOPRAZOLE SODIUM
  47. SOD BICARB [Concomitant]
  48. ALBUMIN [Concomitant]
     Active Substance: ALBUMIN HUMAN
  49. BACITRACIN. [Concomitant]
     Active Substance: BACITRACIN
  50. CALCIUM GLUCONATE. [Concomitant]
     Active Substance: CALCIUM GLUCONATE
  51. FLUDROCORTISONE [Concomitant]
     Active Substance: FLUDROCORTISONE
  52. SENNA [Concomitant]
     Active Substance: SENNA LEAF\SENNOSIDES\SENNOSIDES A AND B
  53. DEXMEDETOMIDINE. [Concomitant]
     Active Substance: DEXMEDETOMIDINE
  54. HYDROMORPHONE [Concomitant]
     Active Substance: HYDROMORPHONE
  55. LACTATED RINGERS SOLUTION [Concomitant]
     Active Substance: CALCIUM CHLORIDE\POTASSIUM CHLORIDE\SODIUM CHLORIDE\SODIUM LACTATE
  56. MIDODRINE [Concomitant]
     Active Substance: MIDODRINE
  57. NOREPINEPHRINE. [Concomitant]
     Active Substance: NOREPINEPHRINE

REACTIONS (6)
  - Burkholderia test positive [None]
  - Hypotension [None]
  - Cardiac arrest [None]
  - Generalised oedema [None]
  - Product contamination microbial [None]
  - Dyspnoea [None]

NARRATIVE: CASE EVENT DATE: 20201016
